FAERS Safety Report 7084874-4 (Version None)
Quarter: 2010Q4

REPORT INFORMATION
  Report Type: 
  Country: None (occurrence: None)
  Receive Date: 20101027
  Receipt Date: 20101012
  Transmission Date: 20110411
  Serious: Yes (Life-Threatening, Hospitalization, Disabling)
  Sender: FDA-Public Use
  Company Number: 08-AUR-02680

PATIENT
  Age: 39 Year
  Sex: Female
  Weight: 70 kg

DRUGS (4)
  1. CITALOPRAM [Suspect]
     Indication: DEPRESSION
     Dosage: DAILY - ORAL
     Route: 048
  2. IMITREX [Suspect]
     Indication: MIGRAINE
     Dosage: 50MG - DAILY - ORAL
     Route: 048
     Dates: start: 20070202
  3. IMODIUM [Concomitant]
  4. NORDETTE-28 [Concomitant]

REACTIONS (13)
  - ABASIA [None]
  - ABDOMINAL PAIN [None]
  - ANAPHYLACTOID SHOCK [None]
  - CHEST PAIN [None]
  - DIARRHOEA [None]
  - DYSPNOEA [None]
  - GASTROENTERITIS [None]
  - HYPERHIDROSIS [None]
  - MALAISE [None]
  - PHARYNGEAL OEDEMA [None]
  - PHOTOPHOBIA [None]
  - PYREXIA [None]
  - RASH [None]
